FAERS Safety Report 10578301 (Version 1)
Quarter: 2014Q4

REPORT INFORMATION
  Report Type: Spontaneous
  Country: US (occurrence: None)
  Receive Date: 20141111
  Receipt Date: 20141111
  Transmission Date: 20150529
  Serious: No
  Sender: FDA-Public Use
  Company Number: None

PATIENT
  Age: 30 Year
  Sex: Female
  Weight: 57.61 kg

DRUGS (1)
  1. MONTELUKAST 10 MG [Suspect]
     Active Substance: MONTELUKAST SODIUM
     Indication: ASTHMA
     Dosage: 1 PILL
     Route: 048
     Dates: start: 20141107, end: 20141109

REACTIONS (8)
  - Suicidal ideation [None]
  - Nightmare [None]
  - Paranoia [None]
  - Hallucination [None]
  - Aggression [None]
  - Anxiety [None]
  - Panic attack [None]
  - Self-injurious ideation [None]

NARRATIVE: CASE EVENT DATE: 20141109
